FAERS Safety Report 7760095-4 (Version None)
Quarter: 2011Q3

REPORT INFORMATION
  Report Type: 
  Country: None (occurrence: None)
  Receive Date: 20110919
  Receipt Date: 20110908
  Transmission Date: 20111222
  Serious: Yes (Other)
  Sender: FDA-Public Use
  Company Number: US-BAYER-2011-083768

PATIENT
  Sex: Female

DRUGS (1)
  1. MIRENA [Suspect]
     Dosage: 20 ?G, CONT
     Dates: start: 20110817

REACTIONS (2)
  - POST PROCEDURAL HAEMORRHAGE [None]
  - ABDOMINAL PAIN LOWER [None]
